FAERS Safety Report 4333710-5 (Version None)
Quarter: 2004Q2

REPORT INFORMATION
  Report Type: 
  Country: None (occurrence: None)
  Receive Date: 20040402
  Receipt Date: 20040323
  Transmission Date: 20050107
  Serious: Yes (Death)
  Sender: FDA-Public Use
  Company Number: GB-JNJFOC-20040305556

PATIENT

DRUGS (3)
  1. INFLIXIMAB (INFLIXIMAB, RECOMBINANT) LYOPHILIZED POWDER [Suspect]
     Indication: VASCULITIS
     Dosage: 5 MG/KG, INTRAVENOUS
     Route: 042
  2. CYCLOPHOSPHAMIDE [Suspect]
     Indication: DRUG USE FOR UNKNOWN INDICATION
     Dosage: 2 MG/KG, IN 1 DAY, ORAL
     Route: 048
  3. PREDNISOLONE [Concomitant]

REACTIONS (2)
  - BRONCHOPNEUMONIA [None]
  - LEUKOPENIA [None]
